FAERS Safety Report 25923452 (Version 2)
Quarter: 2025Q4

REPORT INFORMATION
  Report Type: Spontaneous
  Country: EU (occurrence: EU)
  Receive Date: 20251015
  Receipt Date: 20251021
  Transmission Date: 20260118
  Serious: Yes (Disabling, Other)
  Sender: NOVARTIS
  Company Number: EU-002147023-NVSC2025DE154536

PATIENT
  Age: 69 Year
  Sex: Female
  Weight: 65 kg

DRUGS (4)
  1. MAYZENT [Suspect]
     Active Substance: SIPONIMOD
     Indication: Secondary progressive multiple sclerosis
     Dosage: 2 MG, QD
     Route: 065
     Dates: start: 202503, end: 20250819
  2. BROMAZEPAM [Concomitant]
     Active Substance: BROMAZEPAM
     Indication: Sleep disorder
     Dosage: UNK
     Route: 065
     Dates: start: 202503
  3. CITALOPRAM [Concomitant]
     Active Substance: CITALOPRAM
     Indication: Depression
     Dosage: UNK
     Route: 065
  4. DALFAMPRIDINE [Concomitant]
     Active Substance: DALFAMPRIDINE
     Indication: Walking disability
     Dosage: UNK
     Route: 065

REACTIONS (28)
  - Macular oedema [Recovered/Resolved]
  - Visual impairment [Unknown]
  - Vision blurred [Unknown]
  - Brain stem syndrome [Unknown]
  - Diplopia [Unknown]
  - Deafness [Unknown]
  - Speech disorder [Unknown]
  - Dysphagia [Unknown]
  - Sensorimotor disorder [Unknown]
  - Asthenia [Unknown]
  - Paralysis [Unknown]
  - Gait disturbance [Unknown]
  - Muscle spasticity [Unknown]
  - Nervous system disorder [Unknown]
  - Tremor [Unknown]
  - Ataxia [Unknown]
  - Sensory disturbance [Unknown]
  - Feeling abnormal [Unknown]
  - Hypoaesthesia [Unknown]
  - Pain [Unknown]
  - Lhermitte^s sign [Unknown]
  - Sexual dysfunction [Unknown]
  - Depression [Unknown]
  - Euphoric mood [Unknown]
  - Disturbance in attention [Unknown]
  - Memory impairment [Unknown]
  - Fatigue [Unknown]
  - Bladder dysfunction [Unknown]

NARRATIVE: CASE EVENT DATE: 20250819
